FAERS Safety Report 5863599-4 (Version None)
Quarter: 2008Q3

REPORT INFORMATION
  Report Type: 
  Country: None (occurrence: None)
  Receive Date: 20080828
  Receipt Date: 20080820
  Transmission Date: 20090109
  Serious: Yes (Hospitalization)
  Sender: FDA-Public Use
  Company Number: FR-PFIZER INC-2008034151

PATIENT
  Sex: Male

DRUGS (8)
  1. LYRICA [Suspect]
     Route: 048
     Dates: start: 20070901, end: 20070925
  2. HYDROCHLOROTHIAZIDE/OLMESARTAN [Suspect]
     Dosage: TEXT:1DF
     Route: 048
  3. TARKA [Suspect]
     Dosage: TEXT:1DF
     Route: 048
  4. LOPRESSOR [Concomitant]
     Route: 048
  5. TENSTATEN [Concomitant]
     Route: 048
  6. AMLOR [Concomitant]
     Route: 048
  7. ASPIRIN [Concomitant]
     Route: 048
  8. INIPOMP [Concomitant]
     Route: 048

REACTIONS (3)
  - BRADYCARDIA [None]
  - HYPERKALAEMIA [None]
  - RENAL FAILURE [None]
